FAERS Safety Report 8495176-3 (Version None)
Quarter: 2012Q3

REPORT INFORMATION
  Report Type: 
  Country: None (occurrence: None)
  Receive Date: 20120709
  Receipt Date: 20120702
  Transmission Date: 20120928
  Serious: Yes (Hospitalization)
  Sender: FDA-Public Use
  Company Number: US-BAYER-2012-042370

PATIENT
  Age: 25 Year
  Sex: Female
  Weight: 110 kg

DRUGS (9)
  1. YASMIN [Suspect]
     Indication: POLYCYSTIC OVARIES
  2. COLACE [Concomitant]
     Indication: CONSTIPATION
     Dosage: 100 MG, BID
     Route: 048
  3. WELLBUTRIN [Concomitant]
     Indication: DEPRESSION
     Dosage: 100 MG, BID
     Route: 048
  4. AUGMENTIN '125' [Concomitant]
     Indication: LUNG INFILTRATION
  5. ACYCLOVIR [Concomitant]
     Dosage: 400 MG, UNK
  6. YASMIN [Suspect]
     Indication: CONTRACEPTION
     Dosage: UNK
     Dates: start: 20060913, end: 20061020
  7. SULFAMETHOXAZOLE AND TRIMETHOPRIM DOUBLE STRENGTH [Concomitant]
     Dosage: UNK
  8. CIPROFLOXACIN HCL [Concomitant]
     Indication: DYSURIA
     Dosage: 250 MG, BID
     Route: 048
  9. IBUPROFEN [Concomitant]
     Dosage: 800 MG, TID
     Route: 048

REACTIONS (10)
  - PAIN [None]
  - CHEST PAIN [None]
  - PLEURAL EFFUSION [None]
  - DEEP VEIN THROMBOSIS [None]
  - PULMONARY EMBOLISM [None]
  - INJURY [None]
  - DYSPNOEA [None]
  - ERYTHEMA [None]
  - PAIN IN EXTREMITY [None]
  - OEDEMA PERIPHERAL [None]
